FAERS Safety Report 20833791 (Version 1)
Quarter: 2022Q2

REPORT INFORMATION
  Report Type: Spontaneous
  Country: US (occurrence: None)
  Receive Date: 20220513
  Receipt Date: 20220513
  Transmission Date: 20220721
  Serious: Yes (Other)
  Sender: FDA-Public Use
  Company Number: None

PATIENT
  Age: 34 Year
  Sex: Female
  Weight: 90 kg

DRUGS (4)
  1. BAQSIMI [Suspect]
     Active Substance: GLUCAGON
     Indication: Blood glucose decreased
     Dosage: OTHER QUANTITY : 1 SPRAY(S);?FREQUENCY : AS NEEDED;?
     Route: 045
     Dates: start: 20220512, end: 20220512
  2. HUMALOG [Concomitant]
     Active Substance: INSULIN LISPRO
  3. Insulin injections [Concomitant]
  4. Dexcom CGM [Concomitant]

REACTIONS (2)
  - Vomiting [None]
  - Diarrhoea [None]

NARRATIVE: CASE EVENT DATE: 20220512
